FAERS Safety Report 5391758-6 (Version None)
Quarter: 2007Q3

REPORT INFORMATION
  Report Type: 
  Country: None (occurrence: None)
  Receive Date: 20070717
  Receipt Date: 20070706
  Transmission Date: 20080115
  Serious: Yes (Hospitalization)
  Sender: FDA-Public Use
  Company Number: GXKR2007TW05869

PATIENT
  Age: 47 Year
  Sex: Male

DRUGS (2)
  1. BUPROPION (NGX) (BUPROPION () UNKNOWN [Suspect]
     Indication: MAJOR DEPRESSION
     Dosage: 150 MG, TID
  2. DULOXETINE HYDROCHLORIDE (DULOXETINE HYDROCHLORIDE) [Concomitant]

REACTIONS (9)
  - ABDOMINAL PAIN UPPER [None]
  - DRUG INEFFECTIVE [None]
  - DRUG WITHDRAWAL SYNDROME [None]
  - DYSPHAGIA [None]
  - DYSTONIA [None]
  - THROAT TIGHTNESS [None]
  - TONGUE SPASM [None]
  - TORTICOLLIS [None]
  - TRISMUS [None]
